FAERS Safety Report 9102490 (Version 2)
Quarter: 2013Q1

REPORT INFORMATION
  Report Type: Spontaneous
  Country: ES (occurrence: ES)
  Receive Date: 20130218
  Receipt Date: 20130307
  Transmission Date: 20140127
  Serious: Yes (Hospitalization, Other)
  Sender: FDA-Public Use
  Company Number: ES-AMGEN-ESPSP2013010113

PATIENT
  Age: 84 Year
  Sex: Female

DRUGS (1)
  1. MIMPARA [Suspect]
     Indication: HYPERPARATHYROIDISM
     Dosage: 30 MG, UNK
     Dates: start: 20121227

REACTIONS (3)
  - Hepatic failure [Unknown]
  - Bile duct cancer [Unknown]
  - Gastric disorder [Unknown]
